FAERS Safety Report 9237950 (Version 1)
Quarter: 2013Q1

REPORT INFORMATION
  Report Type: Spontaneous
  Country: US (occurrence: None)
  Receive Date: 20121107
  Receipt Date: 20121107
  Transmission Date: 20140127
  Serious: No
  Sender: FDA-Public Use
  Company Number: 2012HGS-003750

PATIENT
  Age: 54 Year
  Sex: Female
  Weight: 58.97 kg

DRUGS (12)
  1. BENLYSTA [Suspect]
     Indication: SYSTEMIC LUPUS ERYTHEMATOSUS
     Route: 041
     Dates: start: 20120508
  2. PREDNISONE(PREDNISONE) (PREDNISONE) [Concomitant]
  3. PLAQUENIL(HYDROXYCHLOROQUINE SULFATE) (HYDROXYCHLOROQUINE SULFATE) [Concomitant]
  4. AMBIEN(ZOLPIDEM TARTRATE) (ZOLPIDEM TARTRATE) [Concomitant]
  5. CLARITIN(NARINE /01202601/) (PSEUDOEPHEDRINE SULFATE, LORATADINE) [Concomitant]
  6. FLEXERIL(CYCLOBENZAPRINE HYDROCHLORIDE) (CYCLOBENZAPRINE HYDROCHLORIDE) [Concomitant]
  7. GABAPENTIN(GABAPENTIN) (GABAPENTIN) [Concomitant]
  8. PREMARIN(ESTROGENS CONJUGATED) (ESTROGENS CONJUGATED) [Concomitant]
  9. PREVACID(LANSOPRAZOLE) (LANSOPRAZOLE) [Concomitant]
  10. RECLAST(ZOLEDRONIC ACID) (ZOLEDRONIC ACID) [Concomitant]
  11. B COMPLEX-VITAMIN B12(CYANOCOBALAMIN) (CYANOCOBALAMIN) [Concomitant]
  12. CLONAZEPAM(CLONAZEPAM) (CLONAZEPAM) [Concomitant]

REACTIONS (6)
  - Fatigue [None]
  - Pain [None]
  - Hypersensitivity [None]
  - Flushing [None]
  - Swelling face [None]
  - Vasculitic rash [None]
